FAERS Safety Report 11597227 (Version 1)
Quarter: 2015Q4

REPORT INFORMATION
  Report Type: Spontaneous
  Country: US (occurrence: US)
  Receive Date: 20151006
  Receipt Date: 20151006
  Transmission Date: 20160304
  Serious: No
  Sender: FDA-Public Use
  Company Number: US-ELI_LILLY_AND_COMPANY-US201509003797

PATIENT
  Sex: Male

DRUGS (1)
  1. CYMBALTA [Suspect]
     Active Substance: DULOXETINE HYDROCHLORIDE
     Indication: PRODUCT USED FOR UNKNOWN INDICATION
     Dosage: UNK, UNKNOWN
     Route: 065

REACTIONS (11)
  - Nightmare [Unknown]
  - Headache [Unknown]
  - Dizziness [Unknown]
  - Blindness transient [Unknown]
  - Tremor [Unknown]
  - Fatigue [Unknown]
  - Drug withdrawal syndrome [Unknown]
  - Night sweats [Unknown]
  - Depressed mood [Unknown]
  - Erectile dysfunction [Unknown]
  - Bruxism [Unknown]
